FAERS Safety Report 9146097 (Version 1)
Quarter: 2013Q1

REPORT INFORMATION
  Report Type: Spontaneous
  Country: US (occurrence: US)
  Receive Date: 20130307
  Receipt Date: 20130307
  Transmission Date: 20140127
  Serious: No
  Sender: FDA-Public Use
  Company Number: US-PFIZER INC-2013075024

PATIENT
  Age: 4 Year
  Sex: Male
  Weight: 18.14 kg

DRUGS (2)
  1. AZITHROMYCIN [Suspect]
     Dosage: ONE AND HALF TEASPOONS
     Route: 048
     Dates: start: 20130227
  2. TYLENOL [Concomitant]
     Indication: PYREXIA

REACTIONS (2)
  - Off label use [Unknown]
  - Pruritus [Recovering/Resolving]
